FAERS Safety Report 7974538-4 (Version None)
Quarter: 2011Q4

REPORT INFORMATION
  Report Type: 
  Country: None (occurrence: None)
  Receive Date: 20111213
  Receipt Date: 20111205
  Transmission Date: 20120403
  Serious: Yes (Hospitalization)
  Sender: FDA-Public Use
  Company Number: US-ABBOTT-11P-163-0881420-00

PATIENT
  Sex: Female
  Weight: 53.572 kg

DRUGS (8)
  1. HUMIRA [Suspect]
     Indication: PSORIASIS
     Dates: start: 20080101
  2. LEVOTHYROXINE SODIUM [Concomitant]
     Indication: HYPOTHYROIDISM
  3. CYMBALTA [Concomitant]
     Indication: DEPRESSION
  4. METHOCARBAMOL [Concomitant]
     Indication: BACK PAIN
  5. ZANTAC [Concomitant]
     Indication: PRODUCT USED FOR UNKNOWN INDICATION
  6. GABAPENTIN [Concomitant]
     Indication: BACK PAIN
  7. VALIUM [Concomitant]
     Indication: ANXIETY
  8. SIMVASTATIN [Concomitant]
     Indication: BLOOD CHOLESTEROL INCREASED

REACTIONS (3)
  - BLOOD GLUCOSE INCREASED [None]
  - SKIN HAEMORRHAGE [None]
  - DIABETES MELLITUS [None]
